FAERS Safety Report 11696743 (Version 2)
Quarter: 2015Q4

REPORT INFORMATION
  Report Type: Report from Study
  Country: US (occurrence: US)
  Receive Date: 20151104
  Receipt Date: 20151203
  Transmission Date: 20160304
  Serious: Yes (Death, Hospitalization, Other)
  Sender: FDA-Public Use
  Company Number: US-GILEAD-2015-0180309

PATIENT
  Age: 48 Year
  Sex: Male

DRUGS (8)
  1. TYVASO [Concomitant]
     Active Substance: TREPROSTINIL
  2. VANCOMYCIN [Concomitant]
     Active Substance: VANCOMYCIN
     Indication: STAPHYLOCOCCAL INFECTION
     Dosage: UNK
     Dates: start: 2015
  3. AMBRISENTAN [Suspect]
     Active Substance: AMBRISENTAN
     Indication: PULMONARY HYPERTENSION
     Dosage: 10 MG, QD
     Route: 065
     Dates: start: 20150624
  4. WATER. [Concomitant]
     Active Substance: WATER
     Indication: BLOOD SODIUM INCREASED
     Dosage: UNK
     Dates: start: 2015
  5. DEXTROSE. [Concomitant]
     Active Substance: DEXTROSE
     Dosage: UNK
     Dates: start: 2015
  6. ADEMPAS [Concomitant]
     Active Substance: RIOCIGUAT
  7. ZOSYN [Concomitant]
     Active Substance: PIPERACILLIN SODIUM\TAZOBACTAM SODIUM
     Indication: STAPHYLOCOCCAL INFECTION
     Dosage: UNK
     Dates: start: 2015
  8. REPLETE [Concomitant]
     Indication: NUTRITIONAL SUPPLEMENTATION
     Dosage: UNK
     Dates: start: 2015

REACTIONS (4)
  - Procedural complication [Not Recovered/Not Resolved]
  - Thromboembolectomy [Not Recovered/Not Resolved]
  - Cerebrovascular accident [Fatal]
  - Haemorrhagic stroke [Fatal]

NARRATIVE: CASE EVENT DATE: 20150929
